FAERS Safety Report 5286827-5 (Version None)
Quarter: 2007Q1

REPORT INFORMATION
  Report Type: 
  Country: None (occurrence: None)
  Receive Date: 20070329
  Receipt Date: 20070314
  Transmission Date: 20070707
  Serious: Yes (Death)
  Sender: FDA-Public Use
  Company Number: B0463100A

PATIENT
  Age: 67 Year
  Sex: Female

DRUGS (2)
  1. ZOVIRAX [Suspect]
     Indication: FACIAL PALSY
     Dosage: 200 MG, FIVE TIMES PER DAY/UNK
  2. HEMODIALYSIS [Concomitant]

REACTIONS (14)
  - ABNORMAL BEHAVIOUR [None]
  - AFFECT LABILITY [None]
  - BRAIN OEDEMA [None]
  - BRONCHOPNEUMONIA [None]
  - COORDINATION ABNORMAL [None]
  - FACIAL PALSY [None]
  - GAIT DISTURBANCE [None]
  - GLASGOW COMA SCALE ABNORMAL [None]
  - ISCHAEMIA [None]
  - NERVOUS SYSTEM DISORDER [None]
  - NEUROLOGICAL EXAMINATION ABNORMAL [None]
  - NEUROTOXICITY [None]
  - SOMNOLENCE [None]
  - SUBDURAL HAEMATOMA [None]
